FAERS Safety Report 5650312-9 (Version None)
Quarter: 2008Q1

REPORT INFORMATION
  Report Type: 
  Country: None (occurrence: None)
  Receive Date: 20080303
  Receipt Date: 20080303
  Transmission Date: 20080703
  Serious: Yes (Life-Threatening, Other)
  Sender: FDA-Public Use
  Company Number: None

PATIENT
  Sex: Female
  Weight: 70.7611 kg

DRUGS (1)
  1. CHANTIX [Suspect]
     Indication: SMOKING CESSATION THERAPY
     Dosage: 1 TAB 2 TIMES DAILY PO
     Route: 048
     Dates: start: 20070907, end: 20080128

REACTIONS (15)
  - ABNORMAL DREAMS [None]
  - AMNESIA [None]
  - ANGER [None]
  - COGNITIVE DISORDER [None]
  - CRYING [None]
  - DEPRESSION [None]
  - HOMICIDAL IDEATION [None]
  - IMPULSE-CONTROL DISORDER [None]
  - JUDGEMENT IMPAIRED [None]
  - MOOD SWINGS [None]
  - NAUSEA [None]
  - PARANOIA [None]
  - SOCIAL AVOIDANT BEHAVIOUR [None]
  - SUICIDAL IDEATION [None]
  - THINKING ABNORMAL [None]
